FAERS Safety Report 6146315-0 (Version None)
Quarter: 2009Q2

REPORT INFORMATION
  Report Type: 
  Country: None (occurrence: None)
  Receive Date: 20090403
  Receipt Date: 20090322
  Transmission Date: 20091009
  Serious: Yes (Hospitalization)
  Sender: FDA-Public Use
  Company Number: PIR# 0903023

PATIENT
  Age: 90 Year
  Sex: Male

DRUGS (1)
  1. CEFUROXIME [Suspect]

REACTIONS (10)
  - ACUTE CORONARY SYNDROME [None]
  - ARTERIOSCLEROSIS CORONARY ARTERY [None]
  - BLOOD CREATINE PHOSPHOKINASE MB INCREASED [None]
  - ELECTROCARDIOGRAM ST SEGMENT ELEVATION [None]
  - LEUKOCYTOSIS [None]
  - RASH PRURITIC [None]
  - TROPONIN I INCREASED [None]
  - TRYPTASE INCREASED [None]
  - TYPE I HYPERSENSITIVITY [None]
  - VENTRICULAR HYPOKINESIA [None]
